FAERS Safety Report 7761777-0 (Version None)
Quarter: 2011Q3

REPORT INFORMATION
  Report Type: 
  Country: None (occurrence: None)
  Receive Date: 20110920
  Receipt Date: 20110915
  Transmission Date: 20111222
  Serious: Yes (Other)
  Sender: FDA-Public Use
  Company Number: PHHY2011JP82221

PATIENT
  Sex: Female

DRUGS (2)
  1. TEGRETOL [Suspect]
     Route: 048
  2. DEPAKENE [Suspect]
     Route: 048

REACTIONS (2)
  - OVULATION DISORDER [None]
  - OVARIAN NEOPLASM [None]
